FAERS Safety Report 9743533 (Version 3)
Quarter: 2014Q3

REPORT INFORMATION
  Report Type: Report from Study
  Country: FR (occurrence: FR)
  Receive Date: 20131210
  Receipt Date: 20140923
  Transmission Date: 20150326
  Serious: Yes (Other)
  Sender: FDA-Public Use
  Company Number: FR-UCBSA-104992

PATIENT
  Age: 55 Year
  Sex: Female
  Weight: 76 kg

DRUGS (6)
  1. SPECIAFOLDINE [Concomitant]
     Active Substance: FOLIC ACID
     Dosage: 20 MG, WEEKLY (QW)
     Route: 048
     Dates: start: 201107
  2. CERTOLIZUMAB PEGOL RA [Suspect]
     Active Substance: CERTOLIZUMAB PEGOL
     Indication: RHEUMATOID ARTHRITIS
     Dosage: 200 MG, EV 2 WEEKS(QOW)
     Route: 058
     Dates: start: 201308, end: 20131029
  3. METOJECT [Suspect]
     Active Substance: METHOTREXATE SODIUM
     Indication: RHEUMATOID ARTHRITIS
     Dosage: 20 MG, WEEKLY (QW)
     Route: 058
     Dates: start: 201302
  4. KARDEGIC [Concomitant]
     Active Substance: ASPIRIN LYSINE
     Indication: ECLAMPSIA
     Dosage: 160 MG, ONCE DAILY (QD)
     Route: 048
     Dates: start: 1990
  5. ESTREVA [Concomitant]
     Active Substance: ESTRADIOL
     Indication: ORAL CONTRACEPTION
     Dosage: 1.5 MG, ONCE DAILY (QD)
     Route: 048
  6. ESTIMA [Concomitant]
     Active Substance: PROGESTERONE
     Indication: ORAL CONTRACEPTION
     Dosage: 100 MG, ONCE DAILY (QD)
     Route: 048

REACTIONS (3)
  - Sleep disorder [Recovered/Resolved]
  - Skin depigmentation [Recovered/Resolved]
  - Hepatocellular injury [Recovered/Resolved]

NARRATIVE: CASE EVENT DATE: 201309
